FAERS Safety Report 5214834-7 (Version None)
Quarter: 2006Q4

REPORT INFORMATION
  Report Type: 
  Country: None (occurrence: None)
  Receive Date: 20061107
  Receipt Date: 20060913
  Transmission Date: 20070319
  Serious: No
  Sender: FDA-Public Use
  Company Number: 200613525BWH

PATIENT
  Age: 81 Year
  Sex: Male
  Weight: 81.6475 kg

DRUGS (17)
  1. LEVITRA [Suspect]
     Dosage: 20 MG, ONCE, ORAL
     Route: 048
     Dates: start: 20060101
  2. LEVITRA [Suspect]
     Dosage: 20 MG, ONCE, ORAL
     Route: 048
     Dates: start: 20060101
  3. LEVITRA [Suspect]
     Dosage: 20 MG, ONCE, ORAL
     Route: 048
     Dates: start: 20060101
  4. LEVITRA [Suspect]
     Dosage: 20 MG, ONCE, ORAL
     Route: 048
     Dates: start: 20060515
  5. LEVITRA [Suspect]
     Dosage: 20 MG, ONCE, ORAL
     Route: 048
     Dates: start: 20060519
  6. COLACE [Concomitant]
  7. ATENOLOL [Concomitant]
  8. COUMADIN [Concomitant]
  9. LEVOTHYROXINE SODIUM [Concomitant]
  10. RABEPRAZOLE SODIUM [Concomitant]
  11. ZOCOR [Concomitant]
  12. FOSAMAX [Concomitant]
  13. ASPIRIN [Concomitant]
  14. ATROVENT [Concomitant]
  15. TERAZOSIN HCL [Concomitant]
  16. ZANTAC [Concomitant]
  17. CELEBREX [Concomitant]

REACTIONS (1)
  - ERECTILE DYSFUNCTION [None]
